FAERS Safety Report 7211130-3 (Version None)
Quarter: 2011Q1

REPORT INFORMATION
  Report Type: 
  Country: None (occurrence: None)
  Receive Date: 20110105
  Receipt Date: 20101230
  Transmission Date: 20110831
  Serious: Yes (Other)
  Sender: FDA-Public Use
  Company Number: US-GENZYME-HECT-1000117

PATIENT
  Sex: Male

DRUGS (1)
  1. HECTOROL [Suspect]
     Indication: HYPERPARATHYROIDISM SECONDARY
     Dosage: 4 MCG, TIW
     Route: 042
     Dates: start: 20101230

REACTIONS (7)
  - HYPERTENSION [None]
  - NERVOUSNESS [None]
  - ANXIETY [None]
  - HYPERHIDROSIS [None]
  - TREMOR [None]
  - DYSPNOEA [None]
  - OXYGEN SATURATION DECREASED [None]
